FAERS Safety Report 9053595 (Version 1)
Quarter: 2013Q1

REPORT INFORMATION
  Report Type: Spontaneous
  Country: US (occurrence: US)
  Receive Date: 20130208
  Receipt Date: 20130208
  Transmission Date: 20140127
  Serious: Yes (Other)
  Sender: FDA-Public Use
  Company Number: PHHY2013US009289

PATIENT
  Age: 13 Year
  Sex: Male

DRUGS (1)
  1. DEXAMETHASONE [Suspect]

REACTIONS (8)
  - Neurological symptom [Recovered/Resolved]
  - Skin striae [Recovered/Resolved]
  - Obesity [Recovered/Resolved]
  - Hypertension [Recovered/Resolved]
  - Headache [Recovered/Resolved]
  - Vision blurred [Recovered/Resolved]
  - Altered visual depth perception [Recovered/Resolved]
  - Balance disorder [Recovered/Resolved]
